FAERS Safety Report 10433763 (Version 1)
Quarter: 2014Q3

REPORT INFORMATION
  Report Type: Spontaneous
  Country: NO (occurrence: NO)
  Receive Date: 20140905
  Receipt Date: 20140905
  Transmission Date: 20150326
  Serious: Yes (Life-Threatening, Hospitalization, Other)
  Sender: FDA-Public Use
  Company Number: NO-PFIZER INC-2014243385

PATIENT
  Age: 87 Year
  Sex: Male

DRUGS (4)
  1. OXYNORM [Interacting]
     Active Substance: OXYCODONE HYDROCHLORIDE
     Indication: PAIN
     Dosage: 5 MG, UNK
     Route: 048
  2. NORSPAN [Interacting]
     Active Substance: BUPRENORPHINE
     Indication: PAIN
     Dosage: 15 UG, UNK
     Route: 062
  3. LYRICA [Suspect]
     Active Substance: PREGABALIN
     Dosage: 225 MG, UNK
     Route: 048
     Dates: start: 20140710, end: 20140710
  4. RAMIPRIL. [Concomitant]
     Active Substance: RAMIPRIL
     Dosage: 5 MG, UNK
     Route: 048
     Dates: start: 20140710, end: 20140710

REACTIONS (4)
  - Drug dispensed to wrong patient [Unknown]
  - Drug interaction [Unknown]
  - Oxygen saturation decreased [Unknown]
  - Coma [Unknown]

NARRATIVE: CASE EVENT DATE: 20140710
